FAERS Safety Report 20386531 (Version 1)
Quarter: 2022Q1

REPORT INFORMATION
  Report Type: Spontaneous
  Country: US (occurrence: US)
  Receive Date: 20220127
  Receipt Date: 20220127
  Transmission Date: 20220423
  Serious: No
  Sender: FDA-Public Use
  Company Number: US-ALLERGAN-2100791US

PATIENT
  Age: 54 Year
  Sex: Female

DRUGS (9)
  1. BOTOX COSMETIC [Suspect]
     Active Substance: ONABOTULINUMTOXINA
     Indication: Skin wrinkling
     Dosage: 15 UNITS, SINGLE
     Dates: start: 20201206, end: 20201206
  2. BOTOX COSMETIC [Suspect]
     Active Substance: ONABOTULINUMTOXINA
     Indication: Skin wrinkling
     Dosage: 24 UNITS, SINGLE
     Dates: start: 20201206, end: 20201206
  3. BOTOX COSMETIC [Suspect]
     Active Substance: ONABOTULINUMTOXINA
     Indication: Skin wrinkling
     Dosage: 16 UNITS, SINGLE
     Dates: start: 20201206, end: 20201206
  4. BOTOX COSMETIC [Suspect]
     Active Substance: ONABOTULINUMTOXINA
     Dosage: 15 UNITS, SINGLE
     Dates: start: 20201118, end: 20201118
  5. BOTOX COSMETIC [Suspect]
     Active Substance: ONABOTULINUMTOXINA
     Dosage: 24 UNITS, SINGLE
     Dates: start: 20201118, end: 20201118
  6. BOTOX COSMETIC [Suspect]
     Active Substance: ONABOTULINUMTOXINA
     Dosage: 16 UNITS, SINGLE
     Dates: start: 20201118, end: 20201118
  7. ESTRADIOL [Concomitant]
     Active Substance: ESTRADIOL
     Dosage: APPLY 1 PUMP IN PM  TO WRIST WRIST
     Dates: start: 20200909, end: 20210208
  8. PROGESTERONE [Concomitant]
     Active Substance: PROGESTERONE
     Dosage: APPLY 1 PUMP TO INNER WRIST EVERY NIGHT
     Dates: start: 20200909, end: 20210208
  9. TESTOSTERONE [Concomitant]
     Active Substance: TESTOSTERONE
     Dosage: APPLY 1 PUMP IN AM  7 DAYS A WEEK   TO  INNER WRIST WRIST
     Dates: start: 20200909, end: 20210208

REACTIONS (6)
  - Multiple use of single-use product [Unknown]
  - Product preparation error [Unknown]
  - Wrong technique in product usage process [Unknown]
  - Product preparation issue [Unknown]
  - Therapeutic response shortened [Unknown]
  - Drug ineffective [Unknown]

NARRATIVE: CASE EVENT DATE: 20201201
